FAERS Safety Report 5694655-1 (Version None)
Quarter: 2008Q2

REPORT INFORMATION
  Report Type: 
  Country: None (occurrence: None)
  Receive Date: 20080404
  Receipt Date: 20080328
  Transmission Date: 20081010
  Serious: Yes (Other)
  Sender: FDA-Public Use
  Company Number: A0718117A

PATIENT
  Age: 61 Year
  Sex: Female

DRUGS (3)
  1. LAMICTAL [Suspect]
     Indication: BIPOLAR DISORDER
     Route: 048
     Dates: start: 20030101, end: 20060201
  2. TRAZODONE HCL [Concomitant]
  3. LEXAPRO [Concomitant]

REACTIONS (2)
  - ALOPECIA [None]
  - DIABETES MELLITUS [None]
